FAERS Safety Report 4622629-8 (Version None)
Quarter: 2005Q1

REPORT INFORMATION
  Report Type: 
  Country: None (occurrence: None)
  Receive Date: 20050330
  Receipt Date: 20050325
  Transmission Date: 20050727
  Serious: Yes (Hospitalization)
  Sender: FDA-Public Use
  Company Number: FR-MERCK-0503FRA00105

PATIENT
  Age: 69 Year
  Sex: Male
  Weight: 64 kg

DRUGS (7)
  1. VIOXX [Suspect]
     Indication: ANKYLOSING SPONDYLITIS
     Route: 048
     Dates: start: 19990101, end: 20040830
  2. SPIRONOLACTONE [Concomitant]
     Route: 048
  3. CARVEDILOL [Concomitant]
     Route: 048
  4. DIGOXIN [Concomitant]
     Route: 048
  5. OMEPRAZOLE [Concomitant]
     Indication: PROPHYLAXIS AGAINST GASTROINTESTINAL ULCER
     Route: 048
  6. ACENOCOUMAROL [Concomitant]
     Indication: ATRIAL FIBRILLATION
     Route: 048
  7. ACENOCOUMAROL [Concomitant]
     Indication: MITRAL VALVE REPLACEMENT
     Route: 048

REACTIONS (5)
  - CONVULSION [None]
  - DIARRHOEA [None]
  - HYPOCALCAEMIA [None]
  - HYPOMAGNESAEMIA [None]
  - WEIGHT DECREASED [None]
